FAERS Safety Report 5318256-X (Version None)
Quarter: 2007Q2

REPORT INFORMATION
  Report Type: 
  Country: None (occurrence: None)
  Receive Date: 20070507
  Receipt Date: 20070427
  Transmission Date: 20071010
  Serious: Yes (Other)
  Sender: FDA-Public Use
  Company Number: PHBS2006BR13428

PATIENT
  Age: 54 Year
  Sex: Female

DRUGS (4)
  1. MIFLONIDE [Suspect]
     Dosage: 400 UG/DAY
     Dates: end: 20070201
  2. MIFLONIDE [Suspect]
     Dosage: 200 UG, BID
  3. FORADIL [Suspect]
     Dosage: UNK, PRN
  4. BUDECORT [Concomitant]
     Indication: RHINITIS
     Dosage: UNK, BID
     Dates: end: 20070201

REACTIONS (5)
  - ASTHMA [None]
  - DYSPNOEA [None]
  - FATIGUE [None]
  - OSTEOPENIA [None]
  - SINUSITIS [None]
